FAERS Safety Report 9201245 (Version 1)
Quarter: 2013Q2

REPORT INFORMATION
  Report Type: Spontaneous
  Country: GB (occurrence: GB)
  Receive Date: 20130401
  Receipt Date: 20130401
  Transmission Date: 20140414
  Serious: Yes (Hospitalization, Other)
  Sender: FDA-Public Use
  Company Number: PHHY2013GB029927

PATIENT
  Age: 75 Year
  Sex: Female

DRUGS (8)
  1. VALSARTAN [Suspect]
     Indication: HYPERTENSION
     Dosage: 80 MG, QD
     Route: 048
     Dates: start: 19991110, end: 20000131
  2. MOTRIN [Suspect]
     Indication: NECK PAIN
     Dosage: 400 MG, QD
     Route: 048
     Dates: start: 20000128, end: 20000131
  3. BENDROFLUAZIDE [Suspect]
     Indication: HYPERTENSION
     Dosage: 2.5 MG, TID
     Route: 048
     Dates: end: 20000131
  4. CIMETIDINE [Concomitant]
     Indication: PRODUCT USED FOR UNKNOWN INDICATION
     Dosage: 400 MG, BID
     Route: 048
     Dates: start: 199911
  5. PARACETAMOL [Concomitant]
     Indication: BACK PAIN
     Route: 048
     Dates: start: 20000128
  6. CO-CODAMOL [Concomitant]
     Indication: NECK PAIN
     Route: 048
     Dates: start: 20000129, end: 20000131
  7. PROCHLORPERAZINE [Concomitant]
     Indication: VERTIGO
     Dosage: 5 MG
     Route: 048
     Dates: start: 19991210
  8. GAVISCON [Concomitant]
     Dosage: 10 ML, PRN
     Route: 048
     Dates: start: 1993

REACTIONS (5)
  - Convulsion [Recovered/Resolved]
  - Pneumonia aspiration [Recovered/Resolved]
  - Hyponatraemia [Recovered/Resolved]
  - Cerebral infarction [Recovered/Resolved]
  - Hypertension [Recovered/Resolved]
